FAERS Safety Report 7156249-0 (Version None)
Quarter: 2010Q4

REPORT INFORMATION
  Report Type: 
  Country: None (occurrence: None)
  Receive Date: 20101214
  Receipt Date: 20101207
  Transmission Date: 20110411
  Serious: Yes (Death, Other)
  Sender: FDA-Public Use
  Company Number: CH-ELI_LILLY_AND_COMPANY-CH201012001787

PATIENT
  Age: 66 Year
  Sex: Male

DRUGS (3)
  1. GEMZAR [Suspect]
     Dosage: 1000 MG/M2, EVERY 3WEEKS
     Route: 042
  2. ELOXATIN [Concomitant]
     Indication: PANCREATIC CARCINOMA
     Dosage: UNK, ON DAY1
     Route: 042
  3. XELODA [Concomitant]
     Indication: PANCREATIC CARCINOMA
     Dosage: UNK, 2/D FOR 28 DOSES DAY1 THROUGH DAY14
     Route: 048

REACTIONS (3)
  - DIARRHOEA [None]
  - INTESTINAL HAEMORRHAGE [None]
  - MUCOSAL INFLAMMATION [None]
